FAERS Safety Report 25350274 (Version 1)
Quarter: 2025Q2

REPORT INFORMATION
  Report Type: Spontaneous
  Country: FR (occurrence: FR)
  Receive Date: 20250523
  Receipt Date: 20250523
  Transmission Date: 20250717
  Serious: Yes (Life-Threatening, Other)
  Sender: SANDOZ
  Company Number: None

PATIENT
  Age: 18 Year
  Sex: Female
  Weight: 112 kg

DRUGS (6)
  1. CEFAZOLIN SODIUM [Suspect]
     Active Substance: CEFAZOLIN SODIUM
     Indication: Product used for unknown indication
     Dosage: 2 GRAM, QD
     Route: 042
     Dates: start: 20041027, end: 20041027
  2. DIPRIVAN [Suspect]
     Active Substance: PROPOFOL
     Indication: Product used for unknown indication
     Dosage: 200 MILLIGRAM, QD
     Route: 042
     Dates: start: 20041027, end: 20041027
  3. FLAGYL [Suspect]
     Active Substance: METRONIDAZOLE\METRONIDAZOLE HYDROCHLORIDE
     Indication: Product used for unknown indication
     Dosage: 500 MILLIGRAM, QD
     Route: 042
     Dates: start: 20041027, end: 20041027
  4. ISOFLURANE [Suspect]
     Active Substance: ISOFLURANE
     Indication: Anaesthesia
     Route: 055
     Dates: start: 20041027, end: 20041027
  5. NIMBEX [Suspect]
     Active Substance: CISATRACURIUM BESYLATE
     Indication: Product used for unknown indication
     Dosage: 10 MILLIGRAM, QD
     Route: 042
     Dates: start: 20041027, end: 20041027
  6. SODIUM OXYBATE [Concomitant]
     Active Substance: SODIUM OXYBATE
     Indication: Anaesthesia
     Route: 065
     Dates: start: 20041109, end: 20041109

REACTIONS (11)
  - Eye movement disorder [Unknown]
  - Hyperthermia [Unknown]
  - Hyperhidrosis [Unknown]
  - Hypertension [Unknown]
  - Tachycardia [Unknown]
  - Nervous system disorder [Unknown]
  - Angiopathy [Unknown]
  - Haemorrhage [Unknown]
  - Meningococcal infection [Unknown]
  - Cardiac arrest [Recovered/Resolved with Sequelae]
  - Paresis [Recovered/Resolved with Sequelae]

NARRATIVE: CASE EVENT DATE: 20041027
